FAERS Safety Report 25605061 (Version 1)
Quarter: 2025Q3

REPORT INFORMATION
  Report Type: Spontaneous
  Country: JP (occurrence: JP)
  Receive Date: 20250725
  Receipt Date: 20250725
  Transmission Date: 20251020
  Serious: Yes (Hospitalization, Other)
  Sender: ROCHE
  Company Number: JP-CHUGAI-2025022894

PATIENT
  Age: 4 Year
  Sex: Female

DRUGS (3)
  1. CELLCEPT [Suspect]
     Active Substance: MYCOPHENOLATE MOFETIL
     Indication: Prophylaxis against transplant rejection
     Route: 048
  2. TACROLIMUS [Concomitant]
     Active Substance: TACROLIMUS
     Route: 065
  3. EVEROLIMUS [Concomitant]
     Active Substance: EVEROLIMUS
     Route: 065

REACTIONS (7)
  - Hypertension [Unknown]
  - Gastrointestinal necrosis [Unknown]
  - Short-bowel syndrome [Unknown]
  - Renal infarct [Unknown]
  - Nephropathy toxic [Unknown]
  - Pulmonary oedema [Unknown]
  - Dehydration [Unknown]
